FAERS Safety Report 23815002 (Version 1)
Quarter: 2024Q2

REPORT INFORMATION
  Report Type: Spontaneous
  Country: CN (occurrence: CN)
  Receive Date: 20240503
  Receipt Date: 20240503
  Transmission Date: 20240715
  Serious: Yes (Other)
  Sender: FDA-Public Use
  Company Number: None

PATIENT
  Age: 61 Year
  Sex: Female

DRUGS (1)
  1. OLANZAPINE [Suspect]
     Active Substance: OLANZAPINE
     Indication: Bipolar disorder
     Dosage: 5MG,QD
     Route: 048
     Dates: start: 20240409, end: 20240412

REACTIONS (1)
  - Bradyarrhythmia [Unknown]

NARRATIVE: CASE EVENT DATE: 20240409
